FAERS Safety Report 4905245-X (Version None)
Quarter: 2006Q1

REPORT INFORMATION
  Report Type: 
  Country: None (occurrence: None)
  Receive Date: 20060208
  Receipt Date: 20051128
  Transmission Date: 20060701
  Serious: No
  Sender: FDA-Public Use
  Company Number: US-GLAXOSMITHKLINE-A0584502A

PATIENT
  Age: 60 Year
  Sex: Female

DRUGS (4)
  1. PAXIL [Suspect]
     Indication: SERUM SEROTONIN DECREASED
     Dosage: 40MG PER DAY
     Route: 048
     Dates: start: 20050901
  2. PAXIL CR [Suspect]
     Indication: SERUM SEROTONIN DECREASED
     Dosage: 37.5MG PER DAY
     Route: 048
     Dates: start: 20050801
  3. DIAZIDE [Concomitant]
  4. UNKNOWN MEDICATION [Concomitant]

REACTIONS (4)
  - CHEST PAIN [None]
  - DRUG INEFFECTIVE [None]
  - MEMORY IMPAIRMENT [None]
  - PALPITATIONS [None]
